FAERS Safety Report 4881859-0 (Version None)
Quarter: 2006Q1

REPORT INFORMATION
  Report Type: 
  Country: None (occurrence: None)
  Receive Date: 20060112
  Receipt Date: 20060112
  Transmission Date: 20060701
  Serious: Yes (Other)
  Sender: FDA-Public Use
  Company Number: None

PATIENT
  Age: 47 Year
  Sex: Female
  Weight: 86.1834 kg

DRUGS (1)
  1. BACTRIM DS [Suspect]
     Indication: ANTIBIOTIC PROPHYLAXIS
     Dosage: SEE IMAGE
     Route: 048
     Dates: start: 20060110, end: 20060111

REACTIONS (9)
  - ARTHRALGIA [None]
  - CHILLS [None]
  - COUGH [None]
  - CYSTITIS [None]
  - INFLUENZA [None]
  - MYALGIA [None]
  - PYREXIA [None]
  - SIMILAR REACTION ON PREVIOUS EXPOSURE TO DRUG [None]
  - URINARY TRACT INFECTION [None]
